FAERS Safety Report 13666678 (Version 1)
Quarter: 2017Q2

REPORT INFORMATION
  Report Type: Spontaneous
  Country: US (occurrence: US)
  Receive Date: 20170619
  Receipt Date: 20170619
  Transmission Date: 20170830
  Serious: No
  Sender: FDA-Public Use
  Company Number: US-ROCHE-1438996

PATIENT
  Sex: Female

DRUGS (15)
  1. ZOMETA [Concomitant]
     Active Substance: ZOLEDRONIC ACID
     Dosage: DAILY OVER 30 MINUTES FOR 1 DAY IN NS 150 ML (1) AT THE RATE OF 300 ML/HR
     Route: 042
  2. AFINITOR [Concomitant]
     Active Substance: EVEROLIMUS
     Dosage: DAILY FOR 30 DAYS
     Route: 048
     Dates: start: 20140624
  3. DEXAMETHASONE SODIUM PHOSPHATE. [Concomitant]
     Active Substance: DEXAMETHASONE SODIUM PHOSPHATE
     Dosage: OVER 10 MINUTES FOR ONE DAY IN NS 50 ML AT TEH RATE OF 300 ML/HR
     Route: 042
  4. NEUPOGEN [Concomitant]
     Active Substance: FILGRASTIM
     Dosage: DAILY FOR 5 DAYS
     Route: 065
  5. FAMOTIDINE. [Concomitant]
     Active Substance: FAMOTIDINE
     Dosage: DAILY INTERMITTENT OVER 15 MINUTES FOR 1 DAY IN NS 50 ML AT TEH RATE OF 200 ML/HR
     Route: 042
  6. DIPHENHYDRAMINE HYDROCHLORIDE. [Concomitant]
     Active Substance: DIPHENHYDRAMINE HYDROCHLORIDE
     Dosage: INTERMITTENT FOR 15 MINUES OVER ONE DAY IN NS 50 ML AT THE RATE OF 200 ML/HR
     Route: 042
  7. PALONOSETRON [Concomitant]
     Active Substance: PALONOSETRON
     Dosage: INTERMITTENT OVER 10 MINUTES FOR 1 DAY IN NS 50 ML (2) AT THE RATE OF 300 ML/HR
     Route: 042
  8. IXEMPRA [Suspect]
     Active Substance: IXABEPILONE
     Indication: BREAST CANCER
     Dosage: AT 27,2727 MG/M2 INTERMITTENT OVER 180 MINUTES IN RL 250 ML (6) AT THE RATE OF 83 ML/HR
     Route: 042
     Dates: start: 20120812, end: 20140429
  9. AMBIEN [Concomitant]
     Active Substance: ZOLPIDEM TARTRATE
     Dosage: AT BEDTIME PRN
     Route: 048
  10. GABAPENTIN. [Concomitant]
     Active Substance: GABAPENTIN
     Route: 048
  11. PERCOCET [Concomitant]
     Active Substance: ACETAMINOPHEN\OXYCODONE HYDROCHLORIDE
     Dosage: 1 - 2 DOSE (S) (OF 5-325 MG_ Q 4 TO 6 HOURS PRN
     Route: 048
  12. XELODA [Suspect]
     Active Substance: CAPECITABINE
     Indication: BREAST CANCER
     Route: 048
     Dates: start: 20120911
  13. LACTULOSE. [Concomitant]
     Active Substance: LACTULOSE
     Dosage: 15 - 30 ML B.I.D. PRN
     Route: 048
  14. AROMASIN [Concomitant]
     Active Substance: EXEMESTANE
     Dosage: FOR 30 DAYS
     Route: 048
     Dates: start: 20140624
  15. GRANISETRON [Concomitant]
     Active Substance: GRANISETRON
     Dosage: INTERMITTENT OVER 10 MINUTES FOR 1 DAY IN NS 50 ML AT THE RATE OF 300 ML/HR
     Route: 042

REACTIONS (1)
  - Febrile neutropenia [Not Recovered/Not Resolved]
